FAERS Safety Report 6711719-1 (Version None)
Quarter: 2010Q2

REPORT INFORMATION
  Report Type: 
  Country: None (occurrence: None)
  Receive Date: 20100505
  Receipt Date: 20100427
  Transmission Date: 20101027
  Serious: Yes (Death, Hospitalization)
  Sender: FDA-Public Use
  Company Number: FR-ROCHE-698460

PATIENT
  Sex: Male
  Weight: 57 kg

DRUGS (3)
  1. METHOXY POLYETHYLENE GLYCOL-EPOETIN BETA [Suspect]
     Dosage: FORM: PRE-FILLED SYRINGE, LAST DOSE PRIOR EVENT: 26MAR2010
     Route: 058
     Dates: start: 20091012
  2. LASIX [Concomitant]
  3. FORTIMEL [Concomitant]

REACTIONS (1)
  - PERIPHERAL VASCULAR DISORDER [None]
